FAERS Safety Report 10085605 (Version 3)
Quarter: 2014Q2

REPORT INFORMATION
  Report Type: Spontaneous
  Country: US (occurrence: US)
  Receive Date: 20140418
  Receipt Date: 20140507
  Transmission Date: 20141212
  Serious: Yes (Death)
  Sender: FDA-Public Use
  Company Number: US-009507513-1404USA007419

PATIENT
  Age: 68 Year
  Sex: Female

DRUGS (3)
  1. POSACONAZOLE [Suspect]
     Indication: SINUSITIS
     Route: 048
  2. TERBINAFINE [Suspect]
  3. AMPHOTERICIN B [Suspect]

REACTIONS (3)
  - Fungal infection [Fatal]
  - Rash papular [Fatal]
  - Drug ineffective [Fatal]
